FAERS Safety Report 6148953-8 (Version None)
Quarter: 2009Q2

REPORT INFORMATION
  Report Type: 
  Country: None (occurrence: None)
  Receive Date: 20090406
  Receipt Date: 20090320
  Transmission Date: 20091009
  Serious: Yes (Other)
  Sender: FDA-Public Use
  Company Number: 2009SP000766

PATIENT
  Age: 59 Year
  Sex: Female

DRUGS (4)
  1. ALVESCO [Suspect]
     Indication: ASTHMA
     Dosage: 160 UG; QD; INHALATION
     Route: 055
     Dates: end: 20090301
  2. ALENDRONATE SODIUM [Concomitant]
  3. LEVOTHYROXINE SODIUM [Concomitant]
  4. PREV MEDS [Concomitant]

REACTIONS (5)
  - ANGIOEDEMA [None]
  - DRY MOUTH [None]
  - PHARYNGEAL ERYTHEMA [None]
  - PRURITUS [None]
  - RASH [None]
